FAERS Safety Report 11814075 (Version 3)
Quarter: 2016Q1

REPORT INFORMATION
  Report Type: Spontaneous
  Country: JP (occurrence: JP)
  Receive Date: 20151209
  Receipt Date: 20160127
  Transmission Date: 20160525
  Serious: Yes (Life-Threatening, Hospitalization, Other)
  Sender: FDA-Public Use
  Company Number: JP-PFIZER INC-2015421956

PATIENT
  Age: 65 Year
  Sex: Male
  Weight: 51 kg

DRUGS (6)
  1. OPALMON [Concomitant]
     Active Substance: LIMAPROST
     Indication: CERVICAL RADICULOPATHY
     Dosage: 5 UG, 3X/DAY
     Route: 048
     Dates: start: 20091126
  2. NEUROTROPIN [Concomitant]
     Active Substance: NEUROTROPIN
     Indication: CERVICAL RADICULOPATHY
     Dosage: 2 DF, 2X/DAY
     Route: 048
     Dates: start: 20081115, end: 20150108
  3. LYRICA [Suspect]
     Active Substance: PREGABALIN
     Indication: CERVICAL RADICULOPATHY
     Dosage: 25 MG, 1X/DAY
     Route: 048
     Dates: start: 20150108, end: 20150305
  4. CALONAL [Concomitant]
     Active Substance: ACETAMINOPHEN
     Indication: CERVICAL RADICULOPATHY
     Dosage: 200 MG, 1X/DAY
     Route: 048
     Dates: start: 20130509
  5. TERNELIN [Concomitant]
     Active Substance: TIZANIDINE
     Indication: CERVICAL RADICULOPATHY
     Dosage: 1 MG, 3X/DAY
     Route: 048
     Dates: start: 20091226, end: 20150108
  6. METHYCOBAL [Concomitant]
     Active Substance: METHYLCOBALAMIN
     Indication: CERVICAL RADICULOPATHY
     Dosage: 500 UG, 3X/DAY
     Route: 048
     Dates: start: 20080227

REACTIONS (3)
  - Spinal compression fracture [Recovered/Resolved]
  - Interstitial lung disease [Recovering/Resolving]
  - Respiratory disorder [Unknown]

NARRATIVE: CASE EVENT DATE: 20150108
